FAERS Safety Report 9736006 (Version 2)
Quarter: 2013Q4

REPORT INFORMATION
  Report Type: Report from Study
  Country: DE (occurrence: TR)
  Receive Date: 20131206
  Receipt Date: 20131206
  Transmission Date: 20140711
  Serious: Yes (Death, Life-Threatening, Hospitalization)
  Sender: FDA-Public Use
  Company Number: DE-ACTELION-A-US2013-85901

PATIENT
  Age: 84 Year
  Sex: Female
  Weight: 44.9 kg

DRUGS (1)
  1. VENTAVIS [Suspect]
     Indication: PULMONARY HYPERTENSION
     Dosage: 9X1
     Route: 055
     Dates: start: 20110503, end: 20131114

REACTIONS (2)
  - Respiratory failure [Fatal]
  - General physical health deterioration [Unknown]
